FAERS Safety Report 9146902 (Version 1)
Quarter: 2013Q1

REPORT INFORMATION
  Report Type: Spontaneous
  Country: DK (occurrence: None)
  Receive Date: 20130225
  Receipt Date: 20130225
  Transmission Date: 20140127
  Serious: Yes (Death)
  Sender: FDA-Public Use
  Company Number: 2013MA001269

PATIENT
  Age: 79 Year
  Sex: Female

DRUGS (5)
  1. METFORMIN HYDROCHLORIDE EXTENDED RELEASE [Suspect]
     Route: 048
  2. NOVORAPID [Concomitant]
  3. LEVEMIR [Concomitant]
  4. ACETYLSALICYLIC ACID [Concomitant]
  5. L-THYROX [Concomitant]

REACTIONS (3)
  - Cardiac arrest [None]
  - Lactic acidosis [None]
  - Renal failure acute [None]
